FAERS Safety Report 5945381-2 (Version None)
Quarter: 2008Q4

REPORT INFORMATION
  Report Type: 
  Country: None (occurrence: None)
  Receive Date: 20081107
  Receipt Date: 20081027
  Transmission Date: 20090506
  Serious: Yes (Hospitalization)
  Sender: FDA-Public Use
  Company Number: GB-AMGEN-UK315971

PATIENT
  Sex: Male
  Weight: 97 kg

DRUGS (6)
  1. NEULASTA [Suspect]
     Route: 058
     Dates: start: 20080916, end: 20080916
  2. GEMCITABINE HCL [Suspect]
     Route: 042
     Dates: start: 20080908, end: 20080915
  3. CYCLOPHOSPHAMIDE [Suspect]
     Route: 042
     Dates: start: 20080908, end: 20080908
  4. VINCRISTINE [Suspect]
     Route: 042
     Dates: start: 20080908, end: 20080908
  5. RITUXIMAB [Suspect]
     Route: 042
     Dates: start: 20080908, end: 20080908
  6. PREDNISOLONE [Concomitant]
     Route: 048
     Dates: start: 20080908, end: 20080913

REACTIONS (1)
  - LEUKOCYTOSIS [None]
